FAERS Safety Report 6386932-6 (Version None)
Quarter: 2009Q4

REPORT INFORMATION
  Report Type: 
  Country: None (occurrence: None)
  Receive Date: 20091002
  Receipt Date: 20090923
  Transmission Date: 20100525
  Serious: No
  Sender: FDA-Public Use
  Company Number: DE-ELI_LILLY_AND_COMPANY-DE200907005085

PATIENT
  Age: 13 Year
  Sex: Female

DRUGS (4)
  1. STRATTERA [Suspect]
     Indication: ATTENTION DEFICIT/HYPERACTIVITY DISORDER
     Dosage: 10 MG, DAILY (1/D)
     Route: 048
     Dates: start: 20090618, end: 20090101
  2. STRATTERA [Suspect]
     Dosage: 18 MG, DAILY (1/D)
     Route: 048
     Dates: start: 20090101, end: 20090101
  3. STRATTERA [Suspect]
     Dosage: 25 MG, DAILY (1/D)
     Route: 048
     Dates: start: 20090101, end: 20090701
  4. STRATTERA [Suspect]
     Dosage: 35 MG, DAILY (1/D)
     Route: 048
     Dates: start: 20090701

REACTIONS (3)
  - ABDOMINAL PAIN [None]
  - ALOPECIA [None]
  - FATIGUE [None]
